FAERS Safety Report 8427508-6 (Version None)
Quarter: 2012Q2

REPORT INFORMATION
  Report Type: 
  Country: None (occurrence: None)
  Receive Date: 20120611
  Receipt Date: 20120606
  Transmission Date: 20120825
  Serious: Yes (Life-Threatening)
  Sender: FDA-Public Use
  Company Number: GB-ASTRAZENECA-2012SE37896

PATIENT
  Age: 41 Year
  Sex: Female

DRUGS (4)
  1. QUETIAPINE [Suspect]
     Route: 048
  2. VENLAFAXINE [Suspect]
     Route: 048
  3. OLANZAPINE [Suspect]
  4. PROPRANOLOL [Suspect]

REACTIONS (6)
  - RHABDOMYOLYSIS [None]
  - ACUTE RESPIRATORY DISTRESS SYNDROME [None]
  - CONVULSION [None]
  - LEUKOENCEPHALOPATHY [None]
  - MULTIPLE DRUG OVERDOSE [None]
  - NEUROLEPTIC MALIGNANT SYNDROME [None]
